FAERS Safety Report 7240411-2 (Version None)
Quarter: 2011Q1

REPORT INFORMATION
  Report Type: 
  Country: None (occurrence: None)
  Receive Date: 20110119
  Receipt Date: 20110119
  Transmission Date: 20110831
  Serious: No
  Sender: FDA-Public Use
  Company Number: None

PATIENT
  Sex: Male

DRUGS (1)
  1. RIBAVIRIN [Suspect]
     Dosage: 200 MG SC
     Route: 058
     Dates: start: 20110113

REACTIONS (2)
  - HEADACHE [None]
  - BACK PAIN [None]
